FAERS Safety Report 4684407-3 (Version None)
Quarter: 2005Q2

REPORT INFORMATION
  Report Type: 
  Country: None (occurrence: None)
  Receive Date: 20050531
  Receipt Date: 20050124
  Transmission Date: 20051028
  Serious: Yes (Other)
  Sender: FDA-Public Use
  Company Number: USA040874671

PATIENT
  Age: 61 Year
  Sex: Female

DRUGS (12)
  1. CYMBALTA [Suspect]
     Indication: DEPRESSION
     Dosage: 60 MG DAY
     Dates: start: 20050105
  2. SYMBYAX [Suspect]
     Indication: BIPOLAR I DISORDER
     Dates: start: 20040630
  3. ZYPREXA [Suspect]
     Indication: BIPOLAR DISORDER
     Dates: start: 19960101, end: 20040101
  4. ABILIFY [Concomitant]
  5. GEODON [Concomitant]
  6. KLONOPIN [Concomitant]
  7. EFFEXOR [Concomitant]
  8. LAMICTAL [Concomitant]
  9. FLUOXETINE [Concomitant]
  10. OXYBUTYNIN [Concomitant]
  11. CALCIUM GLUCONATE [Concomitant]
  12. BIOTIN [Concomitant]

REACTIONS (13)
  - DEPRESSION [None]
  - DRUG INEFFECTIVE [None]
  - FATIGUE [None]
  - HEADACHE [None]
  - HYPERTENSION [None]
  - INCREASED APPETITE [None]
  - INSOMNIA [None]
  - MALAISE [None]
  - MOOD ALTERED [None]
  - MUSCLE TWITCHING [None]
  - NAUSEA [None]
  - SOMNOLENCE [None]
  - WEIGHT INCREASED [None]
